FAERS Safety Report 10577839 (Version 1)
Quarter: 2014Q4

REPORT INFORMATION
  Report Type: Spontaneous
  Country: US (occurrence: US)
  Receive Date: 20141111
  Receipt Date: 20141111
  Transmission Date: 20150529
  Serious: Yes (Hospitalization)
  Sender: FDA-Public Use
  Company Number: PHHY2014US143810

PATIENT
  Age: 44 Year
  Sex: Male

DRUGS (4)
  1. PROMETHAZINE [Concomitant]
     Active Substance: PROMETHAZINE\PROMETHAZINE HYDROCHLORIDE
     Indication: PRODUCT USED FOR UNKNOWN INDICATION
     Route: 065
  2. AZITHROMYCIN [Suspect]
     Active Substance: AZITHROMYCIN ANHYDROUS
     Indication: PRODUCT USED FOR UNKNOWN INDICATION
     Route: 065
  3. DEXTROMETHORPHAN [Concomitant]
     Active Substance: DEXTROMETHORPHAN
     Indication: PYREXIA
     Route: 065
  4. DEXTROMETHORPHAN [Concomitant]
     Active Substance: DEXTROMETHORPHAN
     Indication: PRODUCTIVE COUGH

REACTIONS (24)
  - Rash generalised [Recovered/Resolved]
  - Erythema [Recovered/Resolved]
  - Conjunctival hyperaemia [Recovered/Resolved]
  - Renal failure [Recovered/Resolved]
  - Lip dry [Recovered/Resolved]
  - Mucosal dryness [Recovered/Resolved]
  - Blister [Recovered/Resolved]
  - Tongue discolouration [Recovered/Resolved]
  - Drug reaction with eosinophilia and systemic symptoms [Recovered/Resolved]
  - Pyrexia [Recovered/Resolved]
  - Petechiae [Recovered/Resolved]
  - Rash pruritic [Recovered/Resolved]
  - Systemic inflammatory response syndrome [Recovered/Resolved]
  - Rash morbilliform [Recovered/Resolved]
  - Leukocytosis [Recovered/Resolved]
  - Altered state of consciousness [Recovered/Resolved]
  - Disseminated intravascular coagulation [Recovered/Resolved]
  - Skin exfoliation [Recovered/Resolved]
  - Chapped lips [Recovered/Resolved]
  - Malaise [Recovered/Resolved]
  - Rash erythematous [Recovered/Resolved]
  - Hypotension [Recovered/Resolved]
  - Thrombocytopenia [Recovered/Resolved]
  - Lichenoid keratosis [Recovered/Resolved]
